FAERS Safety Report 16401583 (Version 2)
Quarter: 2019Q3

REPORT INFORMATION
  Report Type: Report from Study
  Country: US (occurrence: US)
  Receive Date: 20190606
  Receipt Date: 20190702
  Transmission Date: 20191004
  Serious: Yes (Hospitalization)
  Sender: FDA-Public Use
  Company Number: US-SEATTLE GENETICS-2019SGN01911

PATIENT
  Age: 11 Year
  Sex: Female
  Weight: 63.2 kg

DRUGS (18)
  1. CYCLOBENZAPRINE. [Concomitant]
     Active Substance: CYCLOBENZAPRINE
  2. LIDOCAINE W/PRILOCAINE [Concomitant]
     Active Substance: LIDOCAINE\PRILOCAINE
  3. HYDROCODONE BITARTRATE. [Concomitant]
     Active Substance: HYDROCODONE BITARTRATE
  4. CHLORHEXIDINE GLUCONATE. [Concomitant]
     Active Substance: CHLORHEXIDINE GLUCONATE
  5. SULFAMETHOXAZOLE AND TRIMETHOPRIM [Concomitant]
     Active Substance: SULFAMETHOXAZOLE\TRIMETHOPRIM
  6. HYDROXIZINE HYDROCHLORIDE [Concomitant]
  7. OMEPRAZOLE. [Concomitant]
     Active Substance: OMEPRAZOLE
  8. DOXORUBICIN [Suspect]
     Active Substance: DOXORUBICIN
     Indication: HODGKIN^S DISEASE
     Dosage: 25 MG/M2, BOLUS OVER 1-5 MIN OR BY INTERMITTENT INFUSION OVER 1-15 MIN ON DAYS 1 AND 2
     Route: 042
     Dates: start: 20190326, end: 20190326
  9. BROMPHENIRAMINE W/DEXTROMETHORPHAN HYDROBROMI [Concomitant]
  10. VINCRISTINE [Suspect]
     Active Substance: VINCRISTINE
     Indication: HODGKIN^S DISEASE
     Dosage: 1.4 MG/M2, OVER 1 MIN OR INFUSION ON DAY 8
     Route: 042
     Dates: start: 20190402, end: 20190402
  11. PREDNISONE. [Suspect]
     Active Substance: PREDNISONE
     Indication: HODGKIN^S DISEASE
     Dosage: 20 MG/M2, BID ON DAYS 1-7
     Route: 048
     Dates: start: 20190326, end: 20190326
  12. LORAZEPAM. [Concomitant]
     Active Substance: LORAZEPAM
  13. POLYETHYLENE GLYCOL [Concomitant]
     Active Substance: POLYETHYLENE GLYCOLS
  14. ONDANSETRON [Concomitant]
     Active Substance: ONDANSETRON
  15. BRENTUXIMAB VEDOTIN [Suspect]
     Active Substance: BRENTUXIMAB VEDOTIN
     Indication: HODGKIN^S DISEASE
     Dosage: 1.8 MG/KG, OVER 30 MIN ON DAY 1
     Route: 042
     Dates: start: 20190326, end: 20190326
  16. ETOPOSIDE. [Suspect]
     Active Substance: ETOPOSIDE
     Indication: HODGKIN^S DISEASE
     Dosage: 125 MG/M2, OVER 60-120 MIN ON DAYS 1-3
     Route: 042
     Dates: start: 20190326, end: 20190326
  17. CYCLOPHOSPHAMIDE. [Suspect]
     Active Substance: CYCLOPHOSPHAMIDE
     Indication: HODGKIN^S DISEASE
     Dosage: 600 MG/M2, OVER 30-60 MIN ON DAYS 1-2
     Route: 042
     Dates: start: 20190326, end: 20190327
  18. RANITIDINE. [Concomitant]
     Active Substance: RANITIDINE

REACTIONS (10)
  - Fatigue [Unknown]
  - Pneumonitis [Recovering/Resolving]
  - Neutrophil count decreased [Unknown]
  - Anxiety [Unknown]
  - Oral pain [Unknown]
  - Constipation [Unknown]
  - White blood cell count decreased [Unknown]
  - Cough [Unknown]
  - Febrile neutropenia [Unknown]
  - Peripheral motor neuropathy [Unknown]

NARRATIVE: CASE EVENT DATE: 20190326
